FAERS Safety Report 8949807 (Version 1)
Quarter: 2012Q4

REPORT INFORMATION
  Report Type: 
  Country: FR (occurrence: FR)
  Receive Date: 20121206
  Receipt Date: 20121206
  Transmission Date: 20130627
  Serious: Yes (Hospitalization)
  Sender: FDA-Public Use
  Company Number: FR-ROCHE-1160133

PATIENT
  Age: 39 Year
  Sex: Female

DRUGS (4)
  1. APRANAX [Suspect]
     Indication: PRODUCT USED FOR UNKNOWN INDICATION
     Route: 048
     Dates: start: 20120601, end: 20120618
  2. APRANAX [Suspect]
     Route: 048
     Dates: start: 20120723
  3. OMEPRAZOL [Concomitant]
     Route: 065
  4. ADEPAL [Concomitant]
     Route: 065

REACTIONS (1)
  - Hepatitis cholestatic [Recovering/Resolving]
